FAERS Safety Report 15718733 (Version 2)
Quarter: 2019Q1

REPORT INFORMATION
  Report Type: Report from Study
  Country: NL (occurrence: NL)
  Receive Date: 20181213
  Receipt Date: 20190111
  Transmission Date: 20190417
  Serious: Yes (Hospitalization, Other)
  Sender: FDA-Public Use
  Company Number: NL-LEO PHARMA-310385

PATIENT
  Age: 18 Year
  Sex: Male
  Weight: 82 kg

DRUGS (17)
  1. CETIRIZINE [Concomitant]
     Active Substance: CETIRIZINE HYDROCHLORIDE
     Indication: DERMATITIS ATOPIC
     Dosage: IF NEEDED
     Route: 048
     Dates: start: 20141126
  2. CICLOSPORIN [Concomitant]
     Active Substance: CYCLOSPORINE
     Indication: KERATITIS
     Route: 061
     Dates: start: 20170629
  3. DEXAMETHAS [Concomitant]
     Indication: KERATITIS
     Route: 061
     Dates: start: 20151126
  4. HYDROXYZINE [Concomitant]
     Active Substance: HYDROXYZINE HYDROCHLORIDE
     Indication: DERMATITIS ATOPIC
     Route: 048
     Dates: start: 20141126
  5. WITHOUT ROSE OIL COOL OINTMENT [Concomitant]
     Indication: DERMATITIS ATOPIC
     Dosage: 1-2 TIMES A DAY
     Dates: start: 20141027
  6. CLINDAMYCIN. [Concomitant]
     Active Substance: CLINDAMYCIN
     Indication: PRODUCT USED FOR UNKNOWN INDICATION
     Route: 048
     Dates: start: 20151015
  7. PREDNISONE. [Concomitant]
     Active Substance: PREDNISONE
     Indication: DERMATITIS ATOPIC
     Route: 048
  8. KETOCONAZOL [Concomitant]
     Active Substance: KETOCONAZOLE
     Indication: DERMATITIS ATOPIC
     Route: 061
     Dates: start: 20161011
  9. LAMISIL [Concomitant]
     Active Substance: TERBINAFINE HYDROCHLORIDE
     Indication: FUNGAL INFECTION
     Route: 061
     Dates: start: 20151014
  10. VIDISIC [Concomitant]
     Indication: KERATITIS
     Route: 061
     Dates: start: 20160613
  11. ZADITEN [Concomitant]
     Active Substance: KETOTIFEN FUMARATE
     Indication: KERATITIS
     Route: 061
     Dates: start: 20160303
  12. PROTOPIC [Suspect]
     Active Substance: TACROLIMUS
     Dates: start: 20140601
  13. ELOCON [Concomitant]
     Active Substance: MOMETASONE FUROATE
     Indication: DERMATITIS ATOPIC
     Dosage: IF NEEDED
     Dates: start: 20141027
  14. VASELINE PURE [Concomitant]
     Active Substance: PETROLATUM
     Indication: DERMATITIS ATOPIC
     Dosage: IF NEEDED
     Route: 061
     Dates: start: 20161126
  15. OCULOTECT [Concomitant]
     Indication: KERATITIS
     Route: 061
     Dates: start: 20170613
  16. PROTOPIC [Suspect]
     Active Substance: TACROLIMUS
     Indication: DERMATITIS ATOPIC
     Dosage: NUMBERS OF TUBES USED: 10 OUT OF 12. TUBE SIZE: 30 GRAM; 0.1% AND 0.03%
     Dates: start: 2003, end: 2006
  17. LOCOID [Concomitant]
     Active Substance: HYDROCORTISONE BUTYRATE
     Indication: DERMATITIS ATOPIC
     Route: 061
     Dates: start: 20141117

REACTIONS (2)
  - Exposure to allergen [Recovered/Resolved]
  - Lymph node palpable [Recovered/Resolved]

NARRATIVE: CASE EVENT DATE: 20170823
